FAERS Safety Report 12640709 (Version 1)
Quarter: 2016Q3

REPORT INFORMATION
  Report Type: Spontaneous
  Country: FR (occurrence: FR)
  Receive Date: 20160810
  Receipt Date: 20160810
  Transmission Date: 20161109
  Serious: Yes (Hospitalization)
  Sender: FDA-Public Use
  Company Number: FR-B.I. PHARMACEUTICALS,INC./RIDGEFIELD-2016-BI-51349FF

PATIENT
  Age: 60 Year
  Sex: Male

DRUGS (7)
  1. PENTACARINAT [Suspect]
     Active Substance: PENTAMIDINE ISETHIONATE
     Indication: ANTIFUNGAL PROPHYLAXIS
     Dosage: STRENGTH:300 MG
     Route: 055
     Dates: start: 20160715
  2. OXOMEMAZINE [Suspect]
     Active Substance: OXOMEMAZINE
     Indication: PREMEDICATION
     Dosage: 5 MG
     Route: 048
     Dates: start: 20160715
  3. SOLU-MEDROL [Suspect]
     Active Substance: METHYLPREDNISOLONE SODIUM SUCCINATE
     Indication: PREMEDICATION
     Route: 042
  4. BRICANYL [Suspect]
     Active Substance: TERBUTALINE SULFATE
     Indication: PREMEDICATION
     Route: 055
  5. POLARAMINE [Suspect]
     Active Substance: DEXCHLORPHENIRAMINE MALEATE
     Indication: PREMEDICATION
     Route: 042
  6. VENTOLINE [Suspect]
     Active Substance: ALBUTEROL
     Indication: PREMEDICATION
     Dosage: 2 PUF
     Route: 055
  7. ATROVENT [Suspect]
     Active Substance: IPRATROPIUM BROMIDE
     Indication: PREMEDICATION
     Route: 055

REACTIONS (3)
  - Bronchospasm [Recovered/Resolved]
  - Respiratory distress [Recovered/Resolved]
  - Altered state of consciousness [Recovered/Resolved]

NARRATIVE: CASE EVENT DATE: 20160715
